FAERS Safety Report 8115094-X (Version None)
Quarter: 2012Q1

REPORT INFORMATION
  Report Type: 
  Country: None (occurrence: None)
  Receive Date: 20120206
  Receipt Date: 20120125
  Transmission Date: 20120608
  Serious: Yes (Hospitalization)
  Sender: FDA-Public Use
  Company Number: JP-JNJFOC-20100507252

PATIENT
  Sex: Female
  Weight: 50 kg

DRUGS (7)
  1. METHOTREXATE [Suspect]
     Indication: RHEUMATOID ARTHRITIS
     Route: 048
     Dates: start: 20090103
  2. REMICADE [Suspect]
     Dosage: 8 INFUSIONS ON UNKNOWN DATES
     Route: 042
     Dates: start: 20100423
  3. METHOTREXATE [Suspect]
     Route: 048
     Dates: start: 20090206, end: 20100413
  4. PIPERACILLIN SODIUM [Concomitant]
     Route: 065
     Dates: start: 20100506
  5. REMICADE [Suspect]
     Indication: RHEUMATOID ARTHRITIS
     Dosage: TOTAL OF 9 INFUSIONS
     Route: 042
     Dates: start: 20090317
  6. OTHER THERAPEUTICS [Concomitant]
     Route: 065
  7. ISONIAZID [Concomitant]
     Indication: ANTIBIOTIC PROPHYLAXIS
     Route: 048
     Dates: start: 20090312, end: 20090612

REACTIONS (3)
  - PULMONARY TUBERCULOSIS [None]
  - PERITONEAL TUBERCULOSIS [None]
  - TUBERCULOSIS GASTROINTESTINAL [None]
